FAERS Safety Report 5196469-8 (Version None)
Quarter: 2006Q4

REPORT INFORMATION
  Report Type: 
  Country: None (occurrence: None)
  Receive Date: 20061227
  Receipt Date: 20061213
  Transmission Date: 20070319
  Serious: Yes (Hospitalization)
  Sender: FDA-Public Use
  Company Number: 2006-03203

PATIENT
  Age: 61 Year

DRUGS (9)
  1. VELCADE [Suspect]
     Indication: MULTIPLE MYELOMA
  2. CYCLOPHOSPHAMIDE [Suspect]
     Indication: MULTIPLE MYELOMA
  3. DOXORUBICIN HCL [Suspect]
     Indication: MULTIPLE MYELOMA
  4. DEXAMETHASONE [Suspect]
     Indication: MULTIPLE MYELOMA
  5. PANTOPRAZOLE SODIUM [Concomitant]
  6. SULFAMETHOXAZOLE + TRIMETHOPRIM [Concomitant]
  7. FAMCICLOVIR (FAMCICLOVIR) [Concomitant]
  8. AMPHO-MORONAL (AMPHOTERICIN B) SUPPOSITORY [Concomitant]
  9. SALVIATHYMOL (PHENYL SALICYLATE, HERBAL EXTRACTS NOS) [Concomitant]

REACTIONS (4)
  - DISEASE RECURRENCE [None]
  - FEBRILE NEUTROPENIA [None]
  - GENERAL PHYSICAL HEALTH DETERIORATION [None]
  - HERPES ZOSTER [None]
